FAERS Safety Report 8348426-8 (Version None)
Quarter: 2012Q2

REPORT INFORMATION
  Report Type: 
  Country: None (occurrence: None)
  Receive Date: 20120509
  Receipt Date: 20120508
  Transmission Date: 20120825
  Serious: Yes (Hospitalization)
  Sender: FDA-Public Use
  Company Number: JP-B.I. PHARMACEUTICALS,INC./RIDGEFIELD-2012-BP-10241NB

PATIENT
  Age: 80 Year
  Sex: Male

DRUGS (6)
  1. CIBENOL [Concomitant]
     Route: 048
  2. AMLODIPINE [Concomitant]
     Route: 048
  3. MAGMITT [Concomitant]
     Route: 048
  4. SPIRIVA [Suspect]
     Indication: CHRONIC OBSTRUCTIVE PULMONARY DISEASE
     Dosage: 5 MCG
     Route: 055
     Dates: start: 20120406, end: 20120427
  5. MUCOSOLVAN [Concomitant]
     Route: 048
  6. TAMSULOSIN HCL [Concomitant]
     Dosage: UNK
     Route: 048

REACTIONS (1)
  - EOSINOPHIL COUNT INCREASED [None]
